FAERS Safety Report 15878788 (Version 2)
Quarter: 2020Q4

REPORT INFORMATION
  Report Type: Report from Study
  Country: ES (occurrence: ES)
  Receive Date: 20190128
  Receipt Date: 20201111
  Transmission Date: 20210113
  Serious: Yes (Other)
  Sender: FDA-Public Use
  Company Number: ES-SAKK-2019SA015903AA

PATIENT

DRUGS (3)
  1. INSULIN RAPID [Concomitant]
     Active Substance: INSULIN NOS
     Indication: TYPE 2 DIABETES MELLITUS
     Dosage: 15 IU, TID
     Route: 058
  2. INSULIN GLARGINE [Suspect]
     Active Substance: INSULIN GLARGINE
     Indication: TYPE 2 DIABETES MELLITUS
     Dosage: 54 IU, QD
     Route: 058
  3. SYNJARDY [Concomitant]
     Active Substance: EMPAGLIFLOZIN\METFORMIN HYDROCHLORIDE
     Indication: TYPE 2 DIABETES MELLITUS
     Dosage: 1 DF, BID
     Route: 048

REACTIONS (10)
  - Feeling hot [Not Recovered/Not Resolved]
  - Decreased appetite [Not Recovered/Not Resolved]
  - Poor quality sleep [Not Recovered/Not Resolved]
  - Condition aggravated [Unknown]
  - Screaming [Not Recovered/Not Resolved]
  - Sleep talking [Not Recovered/Not Resolved]
  - Hypoaesthesia [Not Recovered/Not Resolved]
  - Gait inability [Unknown]
  - Dizziness [Not Recovered/Not Resolved]
  - Hyperhidrosis [Not Recovered/Not Resolved]
